FAERS Safety Report 9698973 (Version 3)
Quarter: 2013Q4

REPORT INFORMATION
  Report Type: Spontaneous
  Country: US (occurrence: None)
  Receive Date: 20131118
  Receipt Date: 20131218
  Transmission Date: 20140711
  Serious: Yes (Hospitalization, Other)
  Sender: FDA-Public Use
  Company Number: ADR-2013-02089

PATIENT
  Age: 48 Year
  Sex: Male

DRUGS (2)
  1. BACLOFEN [Suspect]
     Indication: MUSCLE SPASTICITY
  2. MORPHINE [Suspect]

REACTIONS (6)
  - Overdose [None]
  - Pain [None]
  - Unresponsive to stimuli [None]
  - Burning sensation [None]
  - Malaise [None]
  - Device malfunction [None]
